FAERS Safety Report 14599463 (Version 1)
Quarter: 2018Q1

REPORT INFORMATION
  Report Type: Spontaneous
  Country: BG (occurrence: BG)
  Receive Date: 20180305
  Receipt Date: 20180305
  Transmission Date: 20180509
  Serious: Yes (Hospitalization, Other)
  Sender: FDA-Public Use
  Company Number: BG-GLAXOSMITHKLINE-BG2018031661

PATIENT
  Age: 25 Year
  Sex: Male

DRUGS (8)
  1. CEFUROXIME AXETIL. [Suspect]
     Active Substance: CEFUROXIME AXETIL
     Indication: PYREXIA
  2. CEFOPERAZONE [Concomitant]
     Active Substance: CEFOPERAZONE
     Indication: COUGH
  3. CEFUROXIME AXETIL. [Suspect]
     Active Substance: CEFUROXIME AXETIL
     Indication: COUGH
     Dosage: UNK
     Route: 048
  4. CEFOPERAZONE [Concomitant]
     Active Substance: CEFOPERAZONE
     Indication: PYREXIA
  5. CEFOPERAZONE [Concomitant]
     Active Substance: CEFOPERAZONE
     Indication: CHEST PAIN
  6. CEFUROXIME AXETIL. [Suspect]
     Active Substance: CEFUROXIME AXETIL
     Indication: CHEST PAIN
  7. CEFOPERAZONE [Concomitant]
     Active Substance: CEFOPERAZONE
     Indication: CHILLS
     Dosage: UNK
     Route: 042
  8. CEFUROXIME AXETIL. [Suspect]
     Active Substance: CEFUROXIME AXETIL
     Indication: CHILLS

REACTIONS (3)
  - Toxic epidermal necrolysis [Recovered/Resolved]
  - Pneumonia [Unknown]
  - Stevens-Johnson syndrome [Recovered/Resolved]
